FAERS Safety Report 5374612-5 (Version None)
Quarter: 2007Q2

REPORT INFORMATION
  Report Type: 
  Country: None (occurrence: None)
  Receive Date: 20070626
  Receipt Date: 20070626
  Transmission Date: 20071010
  Serious: Yes (Hospitalization)
  Sender: FDA-Public Use
  Company Number: None

PATIENT
  Age: 58 Year
  Sex: Male

DRUGS (1)
  1. TERAZOSIN HCL [Suspect]
     Indication: HYPERTENSION
     Dosage: 2MG BID PO
     Route: 048
     Dates: start: 20070207, end: 20070209

REACTIONS (1)
  - ANGINA PECTORIS [None]
